FAERS Safety Report 13126480 (Version 1)
Quarter: 2017Q1

REPORT INFORMATION
  Report Type: Spontaneous
  Country: US (occurrence: US)
  Receive Date: 20170118
  Receipt Date: 20170118
  Transmission Date: 20170428
  Serious: No
  Sender: FDA-Public Use
  Company Number: US-ROCHE-1667013

PATIENT
  Sex: Male

DRUGS (10)
  1. AMBIEN [Concomitant]
     Active Substance: ZOLPIDEM TARTRATE
  2. OMEGA 3 [Concomitant]
     Active Substance: OMEGA-3 FATTY ACIDS
  3. SMZ/TMP [Concomitant]
     Active Substance: SULFAMETHOXAZOLE\TRIMETHOPRIM
  4. FOLIC ACID. [Concomitant]
     Active Substance: FOLIC ACID
  5. METHOTREXATE. [Concomitant]
     Active Substance: METHOTREXATE
  6. KLOR-CON [Concomitant]
     Active Substance: POTASSIUM CHLORIDE
  7. RITUXAN [Suspect]
     Active Substance: RITUXIMAB
     Indication: PRODUCT USED FOR UNKNOWN INDICATION
     Route: 065
  8. BENADRYL ALLERGY [Concomitant]
     Active Substance: DIPHENHYDRAMINE HYDROCHLORIDE
  9. FUROSEMIDE. [Concomitant]
     Active Substance: FUROSEMIDE
  10. OXYCODONE [Concomitant]
     Active Substance: OXYCODONE

REACTIONS (5)
  - Fall [Unknown]
  - Intervertebral disc protrusion [Unknown]
  - Sciatica [Unknown]
  - Joint contracture [Unknown]
  - Contusion [Unknown]
